FAERS Safety Report 15678037 (Version 2)
Quarter: 2019Q1

REPORT INFORMATION
  Report Type: Spontaneous
  Country: US (occurrence: US)
  Receive Date: 20181130
  Receipt Date: 20190101
  Transmission Date: 20190417
  Serious: Yes (Life-Threatening, Hospitalization, Other)
  Sender: FDA-Public Use
  Company Number: US-AUROBINDO-AUR-APL-2018-057300

PATIENT
  Age: 17 Year
  Sex: Female

DRUGS (3)
  1. MACROBID [Suspect]
     Active Substance: NITROFURANTOIN\NITROFURANTOIN MONOHYDRATE
     Indication: URINARY TRACT INFECTION
     Dosage: 100 MILLIGRAM, TWO TIMES A DAY
     Route: 065
  2. NAPROXEN. [Suspect]
     Active Substance: NAPROXEN
     Indication: PRODUCT USED FOR UNKNOWN INDICATION
     Dosage: 220 MILLIGRAM (AS NEEDED)
     Route: 048
  3. TORADOL [Suspect]
     Active Substance: KETOROLAC TROMETHAMINE
     Indication: PRODUCT USED FOR UNKNOWN INDICATION
     Dosage: UNK
     Route: 065

REACTIONS (18)
  - Eye irritation [Unknown]
  - Urticaria [Unknown]
  - Pyrexia [Unknown]
  - Dyspnoea [Unknown]
  - Alopecia [Unknown]
  - Toxic epidermal necrolysis [Not Recovered/Not Resolved]
  - Head discomfort [Unknown]
  - Tachycardia [Unknown]
  - Acute respiratory distress syndrome [Unknown]
  - Rash [Unknown]
  - Dermatitis bullous [Unknown]
  - Stevens-Johnson syndrome [Not Recovered/Not Resolved]
  - Oral pain [Unknown]
  - Nausea [Unknown]
  - Headache [Unknown]
  - Myalgia [Unknown]
  - Skin exfoliation [Unknown]
  - Respiratory tract oedema [Unknown]
